FAERS Safety Report 25962184 (Version 1)
Quarter: 2025Q4

REPORT INFORMATION
  Report Type: Spontaneous
  Country: HN (occurrence: HN)
  Receive Date: 20251027
  Receipt Date: 20251027
  Transmission Date: 20260118
  Serious: Yes (Death)
  Sender: RK PHARMA
  Company Number: HN-RK PHARMA, INC-20251000144

PATIENT
  Age: 3 Month
  Sex: Female

DRUGS (3)
  1. METFORMIN HYDROCHLORIDE [Suspect]
     Active Substance: METFORMIN HYDROCHLORIDE
     Indication: Donohue syndrome
     Dosage: UNK, UNKNOWN
     Route: 065
  2. OCTREOTIDE [Concomitant]
     Active Substance: OCTREOTIDE
     Indication: Donohue syndrome
     Dosage: UNK, UNKNOWN
     Route: 065
  3. MALTODEXTRIN [Concomitant]
     Active Substance: MALTODEXTRIN
     Indication: Donohue syndrome
     Dosage: UNK, UNKNOWN
     Route: 065

REACTIONS (1)
  - Therapy non-responder [Fatal]
